FAERS Safety Report 8511141-1 (Version None)
Quarter: 2012Q3

REPORT INFORMATION
  Report Type: 
  Country: None (occurrence: None)
  Receive Date: 20120716
  Receipt Date: 20120705
  Transmission Date: 20120928
  Serious: Yes (Hospitalization)
  Sender: FDA-Public Use
  Company Number: US-SANOFI-AVENTIS-2012SA048587

PATIENT
  Sex: Male

DRUGS (1)
  1. PLAVIX [Suspect]
     Route: 048

REACTIONS (2)
  - PROSTATIC DISORDER [None]
  - INFECTION [None]
